FAERS Safety Report 5265253-9 (Version None)
Quarter: 2007Q1

REPORT INFORMATION
  Report Type: 
  Country: None (occurrence: None)
  Receive Date: 20061213
  Receipt Date: 20040203
  Transmission Date: 20070707
  Serious: Yes (Other)
  Sender: FDA-Public Use
  Company Number: 2004UW00180

PATIENT
  Age: 78 Year
  Sex: Female
  Weight: 67.586 kg

DRUGS (5)
  1. IRESSA [Suspect]
     Indication: NON-SMALL CELL LUNG CANCER
     Dosage: 250 MG PO
     Route: 048
  2. FOSAMAX [Concomitant]
  3. ZOCOR [Concomitant]
  4. ADVIL [Concomitant]
  5. SPIRONOLACTONE [Concomitant]

REACTIONS (3)
  - ALOPECIA [None]
  - DIARRHOEA [None]
  - RASH [None]
